FAERS Safety Report 6072429-X (Version None)
Quarter: 2009Q1

REPORT INFORMATION
  Report Type: 
  Country: None (occurrence: None)
  Receive Date: 20090210
  Receipt Date: 20090203
  Transmission Date: 20090719
  Serious: Yes (Hospitalization, Disabling)
  Sender: FDA-Public Use
  Company Number: FR-AVENTIS-200910395FR

PATIENT
  Age: 57 Year
  Sex: Female

DRUGS (5)
  1. TAXOTERE [Suspect]
     Dates: start: 20080930
  2. GAVISCON [Concomitant]
     Indication: DRUG USE FOR UNKNOWN INDICATION
  3. EUPANTOL                           /01263201/ [Concomitant]
     Indication: DRUG USE FOR UNKNOWN INDICATION
  4. CLASTOBAN [Concomitant]
     Indication: DRUG USE FOR UNKNOWN INDICATION
  5. DIALGIREX [Concomitant]
     Indication: DRUG USE FOR UNKNOWN INDICATION

REACTIONS (2)
  - POLYNEUROPATHY [None]
  - RESTLESS LEGS SYNDROME [None]
